FAERS Safety Report 5924741-X (Version None)
Quarter: 2008Q4

REPORT INFORMATION
  Report Type: 
  Country: None (occurrence: None)
  Receive Date: 20081017
  Receipt Date: 20081003
  Transmission Date: 20090506
  Serious: Yes (Other)
  Sender: FDA-Public Use
  Company Number: 232766J08USA

PATIENT
  Age: 48 Year
  Sex: Female

DRUGS (4)
  1. REBIF [Suspect]
     Indication: MULTIPLE SCLEROSIS
     Dosage: 44 MCG, 3 IN 1 WEEKS, SUBCUTANEOUS
     Route: 058
     Dates: start: 20060803
  2. DIURETICS(DIURETICS) [Concomitant]
  3. MOTRIN [Concomitant]
  4. EMLA CREAM(EMLA) [Concomitant]

REACTIONS (1)
  - UMBILICAL HERNIA [None]
